FAERS Safety Report 7528836-9 (Version None)
Quarter: 2011Q2

REPORT INFORMATION
  Report Type: 
  Country: None (occurrence: None)
  Receive Date: 20110520
  Receipt Date: 20110317
  Transmission Date: 20111010
  Serious: No
  Sender: FDA-Public Use
  Company Number: 029546

PATIENT
  Sex: Female

DRUGS (3)
  1. LACOSAMIDE [Suspect]
     Indication: PARTIAL SEIZURES
     Dosage: (400 MG LOAD INTRAVENOUS (NOT OTHERWISE SPCIFIED))
     Route: 042
  2. LAMICTAL [Concomitant]
  3. TOPIRAMATE [Concomitant]

REACTIONS (1)
  - DERMATITIS CONTACT [None]
